FAERS Safety Report 11270633 (Version 1)
Quarter: 2015Q3

REPORT INFORMATION
  Report Type: Report from Study
  Country: MX (occurrence: MX)
  Receive Date: 20150714
  Receipt Date: 20150714
  Transmission Date: 20151125
  Serious: Yes (Other)
  Sender: FDA-Public Use
  Company Number: PHHY2015MX082590

PATIENT
  Age: 56 Year
  Sex: Female
  Weight: 56 kg

DRUGS (4)
  1. AFINITOR [Suspect]
     Active Substance: EVEROLIMUS
     Dosage: 5 MG, QD
     Route: 065
  2. AFINITOR [Suspect]
     Active Substance: EVEROLIMUS
     Indication: RENAL CELL CARCINOMA
     Dosage: 10 MG, UNK
     Route: 065
     Dates: start: 201004, end: 201007
  3. VYTORIN [Concomitant]
     Active Substance: EZETIMIBE\SIMVASTATIN
     Indication: HYPERTRIGLYCERIDAEMIA
  4. VYTORIN [Concomitant]
     Active Substance: EZETIMIBE\SIMVASTATIN
     Indication: HYPERCHOLESTEROLAEMIA
     Route: 065

REACTIONS (16)
  - Therapeutic response decreased [Unknown]
  - Retroperitoneal lymphadenopathy [Unknown]
  - Pulmonary mass [Unknown]
  - Blood cholesterol increased [Unknown]
  - Dermatosis [Unknown]
  - Inferior vena cava syndrome [Unknown]
  - Dry skin [Unknown]
  - Drug metabolising enzyme decreased [Unknown]
  - Blood triglycerides increased [Unknown]
  - Blood glucose increased [Unknown]
  - Lacrimation increased [Unknown]
  - Hilar lymphadenopathy [Unknown]
  - Nausea [Unknown]
  - Mucosal inflammation [Unknown]
  - Fatigue [Unknown]
  - Diarrhoea [Unknown]

NARRATIVE: CASE EVENT DATE: 201009
